FAERS Safety Report 7921025 (Version 3)
Quarter: 2013Q2

REPORT INFORMATION
  Report Type: Spontaneous
  Country: US (occurrence: US)
  Receive Date: 20110429
  Receipt Date: 20130604
  Transmission Date: 20140414
  Serious: Yes (Hospitalization)
  Sender: FDA-Public Use
  Company Number: US-JNJFOC-20110409309

PATIENT
  Age: 36 Year
  Sex: Female
  Weight: 86.18 kg

DRUGS (6)
  1. STELARA [Suspect]
     Indication: PSORIASIS
     Route: 058
  2. PROTONIX [Suspect]
     Indication: GASTRIC DISORDER
  3. LEVOTHYROXINE [Concomitant]
  4. HYZAAR [Concomitant]
  5. BIRTH CONTROL PILLS (UNSPECIFIED) [Concomitant]
  6. HYDROXYZINE [Concomitant]

REACTIONS (2)
  - Pustular psoriasis [Recovered/Resolved]
  - Urticaria [Recovered/Resolved]
